FAERS Safety Report 6413553-9 (Version None)
Quarter: 2009Q4

REPORT INFORMATION
  Report Type: 
  Country: None (occurrence: None)
  Receive Date: 20091026
  Receipt Date: 20091013
  Transmission Date: 20100525
  Serious: Yes (Hospitalization)
  Sender: FDA-Public Use
  Company Number: PHHY2009MX44437

PATIENT
  Sex: Female

DRUGS (4)
  1. DIOVAN HCT [Suspect]
     Indication: HYPERTENSION
     Dosage: 2 DF (160/25 MG) PER DAY
     Dates: start: 20091010, end: 20091013
  2. JANUMET [Concomitant]
  3. CYMBALTA [Concomitant]
  4. ACETYLSALICYLIC ACID [Concomitant]

REACTIONS (1)
  - MYOCARDIAL INFARCTION [None]
